FAERS Safety Report 8323255-X (Version None)
Quarter: 2012Q2

REPORT INFORMATION
  Report Type: 
  Country: None (occurrence: None)
  Receive Date: 20120430
  Receipt Date: 20120316
  Transmission Date: 20120825
  Serious: Yes (Other)
  Sender: FDA-Public Use
  Company Number: CHPA2012US009501

PATIENT
  Age: 77 Year
  Sex: Female

DRUGS (2)
  1. TYLENOL (CAPLET) [Concomitant]
     Dosage: UNK, UNK
     Route: 048
  2. MAALOX ANTACID/ANTIGAS MAX LIQ [Suspect]
     Indication: DYSPEPSIA
     Dosage: UNK, AS DIRECTED
     Route: 048

REACTIONS (7)
  - CONTUSION [None]
  - THROMBOSIS [None]
  - JOINT INJURY [None]
  - BACK INJURY [None]
  - LIMB INJURY [None]
  - SKIN ULCER [None]
  - FALL [None]
